FAERS Safety Report 18479311 (Version 1)
Quarter: 2020Q4

REPORT INFORMATION
  Report Type: Spontaneous
  Country: US (occurrence: US)
  Receive Date: 20201106
  Receipt Date: 20201106
  Transmission Date: 20210114
  Serious: Yes (Hospitalization)
  Sender: FDA-Public Use
  Company Number: None

PATIENT
  Age: 58 Year
  Sex: Female

DRUGS (9)
  1. CARVEDILOL 6.25MG [Concomitant]
     Active Substance: CARVEDILOL
  2. ESOMEPRAZOLE 20MG [Concomitant]
     Active Substance: ESOMEPRAZOLE
  3. SOFOSBUVIR/VELPATASVIR [Suspect]
     Active Substance: SOFOSBUVIR\VELPATASVIR
     Indication: HEPATITIS C
     Route: 048
     Dates: start: 20201105
  4. LISINOPRIL. [Concomitant]
     Active Substance: LISINOPRIL
  5. MORPHINE SULFATE ER 30MG [Concomitant]
     Active Substance: MORPHINE SULFATE
  6. PRAMIPREXOLE 0.75MG [Concomitant]
  7. STIOLTO RESPIMAT 2.5/2.5MG [Concomitant]
  8. OXAYDO [Concomitant]
     Active Substance: OXYCODONE HYDROCHLORIDE
  9. ATORVASTATIN 40MG [Concomitant]
     Active Substance: ATORVASTATIN

REACTIONS (3)
  - Faeces discoloured [None]
  - Abdominal pain upper [None]
  - Fatigue [None]

NARRATIVE: CASE EVENT DATE: 20201106
